FAERS Safety Report 6703671-X (Version None)
Quarter: 2010Q2

REPORT INFORMATION
  Report Type: 
  Country: None (occurrence: None)
  Receive Date: 20100430
  Receipt Date: 20100422
  Transmission Date: 20101027
  Serious: Yes (Other)
  Sender: FDA-Public Use
  Company Number: PHHY2010US26190

PATIENT
  Sex: Female

DRUGS (1)
  1. FEMARA [Suspect]
     Dosage: 2.5 MG, QD
     Route: 048

REACTIONS (5)
  - FACE INJURY [None]
  - FALL [None]
  - HEAD INJURY [None]
  - JOINT INJURY [None]
  - OEDEMA PERIPHERAL [None]
